FAERS Safety Report 6646412-7 (Version None)
Quarter: 2010Q1

REPORT INFORMATION
  Report Type: 
  Country: None (occurrence: None)
  Receive Date: 20100322
  Receipt Date: 20100322
  Transmission Date: 20100710
  Serious: Yes (Disabling)
  Sender: FDA-Public Use
  Company Number: None

PATIENT
  Age: 52 Year
  Sex: Male
  Weight: 117.9352 kg

DRUGS (2)
  1. ABILIFY [Suspect]
     Dosage: 30 MG 1XDAILY MOUTH
     Route: 048
     Dates: start: 20091018
  2. ABILIFY [Suspect]
     Dosage: 30 MG 1XDAILY MOUTH
     Route: 048
     Dates: start: 20091212

REACTIONS (5)
  - CHAPPED LIPS [None]
  - IMPAIRED HEALING [None]
  - LIP ULCERATION [None]
  - SCAR [None]
  - TONGUE ULCERATION [None]
